FAERS Safety Report 14116728 (Version 2)
Quarter: 2018Q1

REPORT INFORMATION
  Report Type: Spontaneous
  Country: US (occurrence: US)
  Receive Date: 20171023
  Receipt Date: 20180124
  Transmission Date: 20180508
  Serious: No
  Sender: FDA-Public Use
  Company Number: US-CELGENEUS-USA-20171005921

PATIENT
  Age: 54 Year
  Sex: Male

DRUGS (1)
  1. OTEZLA [Suspect]
     Active Substance: APREMILAST
     Indication: PSORIASIS
     Route: 048
     Dates: start: 20170418

REACTIONS (2)
  - Hypogeusia [Not Recovered/Not Resolved]
  - Hyposmia [Not Recovered/Not Resolved]

NARRATIVE: CASE EVENT DATE: 20170918
